FAERS Safety Report 11660019 (Version 3)
Quarter: 2015Q4

REPORT INFORMATION
  Report Type: Spontaneous
  Country: US (occurrence: None)
  Receive Date: 20151026
  Receipt Date: 20151201
  Transmission Date: 20160304
  Serious: Yes (Other)
  Sender: FDA-Public Use
  Company Number: US-MDT-ADR-2015-02020

PATIENT
  Age: 42 Year
  Sex: Male

DRUGS (2)
  1. CLONIDINE INTRATHECAL 150 MCG/ML [Suspect]
     Active Substance: CLONIDINE
     Dosage: 60.93 MCG/DAY
  2. COMPOUNDED BACLOFEN INTRATHECAL 250 MCG/ML [Suspect]
     Active Substance: BACLOFEN
     Indication: PAIN
     Dosage: 108 MCG/DAY

REACTIONS (7)
  - Vertebral foraminal stenosis [None]
  - Pain in extremity [None]
  - Intervertebral disc degeneration [None]
  - Hypoaesthesia [None]
  - Paraesthesia [None]
  - Tremor [None]
  - Intervertebral disc protrusion [None]
